FAERS Safety Report 15797095 (Version 1)
Quarter: 2019Q1

REPORT INFORMATION
  Report Type: Report from Study
  Country: CA (occurrence: CA)
  Receive Date: 20190108
  Receipt Date: 20190108
  Transmission Date: 20190417
  Serious: Yes (Other)
  Sender: FDA-Public Use
  Company Number: CA-TEVA-2019-CA-995141

PATIENT
  Age: 60 Year
  Sex: Male

DRUGS (4)
  1. DEXAMETHASONE. [Suspect]
     Active Substance: DEXAMETHASONE
     Indication: POEMS SYNDROME
     Route: 065
  2. CYCLOPHOSPHAMIDE. [Suspect]
     Active Substance: CYCLOPHOSPHAMIDE
     Indication: POEMS SYNDROME
     Route: 065
  3. VELCADE [Suspect]
     Active Substance: BORTEZOMIB
     Indication: POEMS SYNDROME
     Route: 065
  4. VELCADE [Suspect]
     Active Substance: BORTEZOMIB
     Route: 065

REACTIONS (8)
  - Abdominal discomfort [Recovered/Resolved]
  - Oedema peripheral [Recovered/Resolved]
  - Product dose omission [Recovered/Resolved]
  - Product use in unapproved indication [Recovered/Resolved]
  - Diarrhoea [Recovered/Resolved]
  - Neuropathy peripheral [Recovered/Resolved]
  - Off label use [Recovered/Resolved]
  - Pyrexia [Recovered/Resolved]
